FAERS Safety Report 12581718 (Version 1)
Quarter: 2016Q3

REPORT INFORMATION
  Report Type: Spontaneous
  Country: CA (occurrence: CA)
  Receive Date: 20160722
  Receipt Date: 20160722
  Transmission Date: 20161109
  Serious: Yes (Other)
  Sender: FDA-Public Use
  Company Number: CA-ROCHE-1797832

PATIENT
  Sex: Female

DRUGS (2)
  1. XOLAIR [Suspect]
     Active Substance: OMALIZUMAB
     Indication: ASTHMA
     Dosage: 150 MG, Q 4 WEEKS
     Route: 058
     Dates: start: 20051121
  2. VENTOLIN [Concomitant]
     Active Substance: ALBUTEROL SULFATE
     Indication: PERFUME SENSITIVITY
     Dosage: 2 DF, QW (2 PUFFS)
     Route: 065

REACTIONS (3)
  - Forced expiratory volume decreased [Unknown]
  - Middle insomnia [Unknown]
  - Asthma [Unknown]
